FAERS Safety Report 11072381 (Version 2)
Quarter: 2015Q3

REPORT INFORMATION
  Report Type: Report from Study
  Country: US (occurrence: US)
  Receive Date: 20150428
  Receipt Date: 20150915
  Transmission Date: 20151125
  Serious: Yes (Hospitalization, Disabling, Other)
  Sender: FDA-Public Use
  Company Number: US-GILEAD-2015-0148883

PATIENT
  Age: 41 Year
  Sex: Female

DRUGS (1)
  1. AMBRISENTAN [Suspect]
     Active Substance: AMBRISENTAN
     Indication: PRODUCT USED FOR UNKNOWN INDICATION
     Dosage: 5 MG, UNK
     Route: 065
     Dates: start: 20141208

REACTIONS (5)
  - Pulmonary thrombosis [Unknown]
  - Haemorrhagic stroke [Unknown]
  - Monoparesis [Unknown]
  - Malaise [Unknown]
  - Obesity [Unknown]

NARRATIVE: CASE EVENT DATE: 20150411
